FAERS Safety Report 6398564-4 (Version None)
Quarter: 2009Q4

REPORT INFORMATION
  Report Type: 
  Country: None (occurrence: None)
  Receive Date: 20091013
  Receipt Date: 20091001
  Transmission Date: 20100525
  Serious: Yes (Death, Other)
  Sender: FDA-Public Use
  Company Number: KR-PFIZER INC-2009249747

PATIENT
  Age: 60 Year

DRUGS (9)
  1. VORICONAZOLE [Suspect]
     Indication: ASPERGILLOSIS
     Dosage: 350 MG, 2X/DAY
     Route: 042
     Dates: start: 20080610, end: 20080610
  2. VORICONAZOLE [Suspect]
     Dosage: 250 MG, 2X/DAY
     Route: 042
     Dates: start: 20080611, end: 20080710
  3. MEROPEN [Concomitant]
     Indication: ANTIBIOTIC LEVEL
     Dosage: 500 MG, 3X/DAY
     Route: 042
     Dates: start: 20080610, end: 20080630
  4. OXYCODONE [Concomitant]
     Indication: PAIN
     Dosage: 80 MG, 2X/DAY
     Route: 048
     Dates: start: 20080610, end: 20080710
  5. PREDNISOLONE [Concomitant]
     Indication: ADRENAL INSUFFICIENCY
     Dosage: 7.5 MG, 1X/DAY
     Route: 048
     Dates: start: 20080610, end: 20080710
  6. PANTOLOC ^BYK MADAUS^ [Concomitant]
     Indication: PROPHYLAXIS AGAINST GASTROINTESTINAL ULCER
     Dosage: 40 MG, 1X/DAY
     Route: 048
     Dates: start: 20080610, end: 20080710
  7. MYPOL [Concomitant]
     Indication: PAIN
     Dosage: 2 CC, 3X/DAY
     Route: 048
     Dates: start: 20080610, end: 20080710
  8. STILNOX [Concomitant]
     Indication: INSOMNIA
     Dosage: 10 MG, 1X/DAY
     Route: 048
     Dates: start: 20080610, end: 20080710
  9. VANCOMYCIN [Concomitant]
     Indication: ANTIBIOTIC LEVEL
     Dosage: 1 G, 2X/DAY
     Route: 042
     Dates: start: 20080616, end: 20080701

REACTIONS (1)
  - DEATH [None]
